FAERS Safety Report 7644474-1 (Version None)
Quarter: 2011Q3

REPORT INFORMATION
  Report Type: 
  Country: None (occurrence: None)
  Receive Date: 20110729
  Receipt Date: 20110721
  Transmission Date: 20111222
  Serious: Yes (Other)
  Sender: FDA-Public Use
  Company Number: CO-ROCHE-777853

PATIENT
  Sex: Female

DRUGS (3)
  1. ACTEMRA [Suspect]
     Indication: RHEUMATOID ARTHRITIS
     Route: 042
     Dates: start: 20100113
  2. DICLOFENAC SODIUM [Concomitant]
     Indication: PAIN
     Dosage: FREQUENCY: PRN
     Route: 048
  3. TRAMADOL HCL [Concomitant]
     Indication: PAIN
     Dosage: DOSE: REPORTED AS DROPS, FREQUENCY: PRN
     Route: 048

REACTIONS (5)
  - ASTHENIA [None]
  - EAR PAIN [None]
  - ODYNOPHAGIA [None]
  - ARTHRALGIA [None]
  - HEADACHE [None]
